FAERS Safety Report 9736715 (Version 1)
Quarter: 2013Q4

REPORT INFORMATION
  Report Type: Spontaneous
  Country: US (occurrence: US)
  Receive Date: 20131206
  Receipt Date: 20131206
  Transmission Date: 20140711
  Serious: No
  Sender: FDA-Public Use
  Company Number: US-GILEAD-2009-0023903

PATIENT
  Sex: Female
  Weight: 70.31 kg

DRUGS (12)
  1. LETAIRIS [Suspect]
     Indication: PULMONARY ARTERIAL HYPERTENSION
     Route: 048
     Dates: start: 20090806
  2. HIDEWAY OXYGEN [Concomitant]
  3. PROCRIT [Concomitant]
  4. COREG [Concomitant]
  5. LASIX [Concomitant]
  6. LISINOPRIL [Concomitant]
  7. PROCARDIA [Concomitant]
  8. PLAVIX [Concomitant]
  9. LIPITOR [Concomitant]
  10. POTASSIUM CHLORIDE [Concomitant]
  11. ALPRAZOLAM [Concomitant]
  12. CENTRUM [Concomitant]

REACTIONS (3)
  - Muscular weakness [Unknown]
  - Anaemia [Unknown]
  - Palpitations [Unknown]
